FAERS Safety Report 6161548-5 (Version None)
Quarter: 2009Q2

REPORT INFORMATION
  Report Type: 
  Country: None (occurrence: None)
  Receive Date: 20090421
  Receipt Date: 20090413
  Transmission Date: 20091009
  Serious: Yes (Other)
  Sender: FDA-Public Use
  Company Number: US-JNJFOC-20090403230

PATIENT
  Sex: Female
  Weight: 60.33 kg

DRUGS (14)
  1. REMICADE [Suspect]
     Indication: COLITIS ULCERATIVE
     Route: 042
  2. ATACAND [Concomitant]
  3. SIMASTATIN [Concomitant]
  4. KLOR-CON [Concomitant]
  5. PREDNISONE [Concomitant]
  6. AZATHIOPRINE [Concomitant]
  7. ALIGN [Concomitant]
  8. ACTONEL [Concomitant]
  9. FISH OIL [Concomitant]
  10. ASPIRIN [Concomitant]
  11. M.V.I. [Concomitant]
  12. ASCORBIC ACID [Concomitant]
  13. OSCAL [Concomitant]
  14. PRILOSEC [Concomitant]

REACTIONS (1)
  - INTRAOCULAR PRESSURE INCREASED [None]
